FAERS Safety Report 19055683 (Version 1)
Quarter: 2021Q1

REPORT INFORMATION
  Report Type: Report from Study
  Country: CN (occurrence: CN)
  Receive Date: 20210324
  Receipt Date: 20210324
  Transmission Date: 20210420
  Serious: Yes (Hospitalization)
  Sender: FDA-Public Use
  Company Number: CN-ASTRAZENECA-2021A024592

PATIENT
  Age: 20744 Day
  Sex: Male

DRUGS (11)
  1. CISPLATIN. [Suspect]
     Active Substance: CISPLATIN
     Indication: TRANSITIONAL CELL CARCINOMA
     Route: 042
     Dates: start: 20210120, end: 20210120
  2. RECOMBINANT HUMAN THROMBOPOIETIN INJECTION [Concomitant]
     Indication: THROMBOCYTOPENIA
     Dosage: 15000.00 U EVERY DAY
     Route: 058
     Dates: start: 20210128, end: 20210201
  3. TREMELIMUMAB. [Suspect]
     Active Substance: TREMELIMUMAB
     Indication: TRANSITIONAL CELL CARCINOMA
     Route: 042
     Dates: start: 20210120, end: 20210120
  4. PEGYLATION RECOMBINANT HUMAN GRANULOCYTE COLONY STIMULATING FACTOR ... [Concomitant]
     Indication: LEUKOPENIA
     Route: 058
     Dates: start: 20210128, end: 20210129
  5. CEFOPERAZONE SODIUM AND SULBACTAM SODIUM FOR INJECTION [Concomitant]
     Indication: INFECTION
     Route: 042
     Dates: start: 20210128, end: 20210131
  6. GEMCITABINE. [Suspect]
     Active Substance: GEMCITABINE
     Indication: TRANSITIONAL CELL CARCINOMA
     Route: 042
     Dates: start: 20210120, end: 20210120
  7. LIDOCAINE HYDROCHLORIDE INJECTION [Concomitant]
     Active Substance: LIDOCAINE HYDROCHLORIDE
     Indication: ANAESTHESIA
     Route: 030
     Dates: start: 20210118, end: 20210119
  8. 25% MAGNESIUM SULFATE INJECTION [Concomitant]
     Indication: ECLAMPSIA
     Route: 042
     Dates: start: 20210118, end: 20210119
  9. AMIFOSTINE FOR INJECTION [Concomitant]
     Indication: PROPHYLAXIS
     Route: 042
     Dates: start: 20210120, end: 20210121
  10. DURVALUMAB. [Suspect]
     Active Substance: DURVALUMAB
     Indication: TRANSITIONAL CELL CARCINOMA
     Route: 042
     Dates: start: 20210120, end: 20210120
  11. GEMCITABINE. [Suspect]
     Active Substance: GEMCITABINE
     Indication: TRANSITIONAL CELL CARCINOMA
     Route: 042
     Dates: start: 20210127, end: 20210127

REACTIONS (2)
  - Urinary tract infection [Recovered/Resolved]
  - Myelosuppression [Recovered/Resolved]

NARRATIVE: CASE EVENT DATE: 20210128
